FAERS Safety Report 23836388 (Version 1)
Quarter: 2024Q2

REPORT INFORMATION
  Report Type: Spontaneous
  Country: US (occurrence: None)
  Receive Date: 20240508
  Receipt Date: 20240508
  Transmission Date: 20240715
  Serious: Yes (Hospitalization)
  Sender: FDA-Public Use
  Company Number: None

PATIENT
  Sex: Male
  Weight: 84.4 kg

DRUGS (5)
  1. CYCLOPHOSPHAMIDE [Suspect]
     Active Substance: CYCLOPHOSPHAMIDE
     Dates: end: 20240109
  2. CYTARABINE [Suspect]
     Active Substance: CYTARABINE
     Dates: end: 20240129
  3. METHOTREXATE [Suspect]
     Active Substance: METHOTREXATE
     Dates: end: 20240131
  4. PONATINIB [Suspect]
     Active Substance: PONATINIB
     Dates: end: 20240207
  5. PREDNISONE [Suspect]
     Active Substance: PREDNISONE
     Dates: end: 20240202

REACTIONS (9)
  - Chills [None]
  - Abdominal pain [None]
  - Diarrhoea [None]
  - Decreased appetite [None]
  - Fluid intake reduced [None]
  - Headache [None]
  - Colitis [None]
  - Febrile neutropenia [None]
  - White blood cell count increased [None]

NARRATIVE: CASE EVENT DATE: 20240208
